FAERS Safety Report 25795523 (Version 2)
Quarter: 2025Q4

REPORT INFORMATION
  Report Type: Report from Study
  Country: US (occurrence: US)
  Receive Date: 20250912
  Receipt Date: 20251111
  Transmission Date: 20260118
  Serious: Yes (Hospitalization, Other)
  Sender: ACADIA PHARMACEUTICALS
  Company Number: US-ACADIA PHARMACEUTICALS INC.-ACA-2025-PIM-009886

PATIENT
  Sex: Male

DRUGS (14)
  1. NUPLAZID [Suspect]
     Active Substance: PIMAVANSERIN TARTRATE
     Indication: Parkinson^s disease
     Dosage: 34 MILLIGRAM, QD
     Route: 048
     Dates: start: 20250314
  2. NUPLAZID [Suspect]
     Active Substance: PIMAVANSERIN TARTRATE
     Indication: Parkinson^s disease
     Dosage: 10 MILLIGRAM, QD
     Route: 048
     Dates: start: 20251010
  3. ASPIRIN [Concomitant]
     Active Substance: ASPIRIN
     Dosage: UNK EC LOW DOSE
  4. DOCUSATE SODIUM [Concomitant]
     Active Substance: DOCUSATE SODIUM
     Dosage: UNK
  5. MINERALS\VITAMINS [Concomitant]
     Active Substance: MINERALS\VITAMINS
     Dosage: UNK
  6. TAMSULOSIN [Concomitant]
     Active Substance: TAMSULOSIN
     Dosage: UNK
  7. ATORVASTATIN [Concomitant]
     Active Substance: ATORVASTATIN
     Dosage: UNK
  8. CARVEDILOL [Concomitant]
     Active Substance: CARVEDILOL
  9. FINASTERIDE [Concomitant]
     Active Substance: FINASTERIDE
     Dosage: UNK
  10. SEROQUEL [Concomitant]
     Active Substance: QUETIAPINE FUMARATE
     Dosage: UNK
  11. LOSARTAN [Concomitant]
     Active Substance: LOSARTAN
     Dosage: UNK
  12. DONEPEZIL [Concomitant]
     Active Substance: DONEPEZIL
     Dosage: UNK
  13. CREXONT [Concomitant]
     Active Substance: CARBIDOPA\LEVODOPA
     Dosage: UNK
  14. FUROSEMIDE [Concomitant]
     Active Substance: FUROSEMIDE
     Dosage: UNK

REACTIONS (4)
  - Fall [Not Recovered/Not Resolved]
  - Hallucination, visual [Not Recovered/Not Resolved]
  - Condition aggravated [Not Recovered/Not Resolved]
  - Underdose [Not Recovered/Not Resolved]
